FAERS Safety Report 7959844-1 (Version None)
Quarter: 2011Q4

REPORT INFORMATION
  Report Type: 
  Country: None (occurrence: None)
  Receive Date: 20111206
  Receipt Date: 20111130
  Transmission Date: 20120403
  Serious: Yes (Other)
  Sender: FDA-Public Use
  Company Number: US-PFIZER INC-2011292439

PATIENT
  Sex: Female

DRUGS (3)
  1. ARTHROTEC [Suspect]
     Dosage: UNK
  2. CELEBREX [Suspect]
     Dosage: UNK
  3. IBUPROFEN [Suspect]
     Dosage: UNK

REACTIONS (3)
  - GASTRIC BYPASS [None]
  - ULCER [None]
  - ARTHRITIS [None]
